FAERS Safety Report 13266006 (Version 1)
Quarter: 2017Q1

REPORT INFORMATION
  Report Type: Spontaneous
  Country: US (occurrence: US)
  Receive Date: 20170223
  Receipt Date: 20170223
  Transmission Date: 20170428
  Serious: Yes (Other)
  Sender: FDA-Public Use
  Company Number: US-TEVA-740761USA

PATIENT
  Sex: Male

DRUGS (1)
  1. AMPHETAMINE W/DEXTROAMPHETAMINE [Suspect]
     Active Substance: AMPHETAMINE SULFATE\DEXTROAMPHETAMINE
     Dosage: 40 MILLIGRAM DAILY;
     Route: 065
     Dates: start: 201607

REACTIONS (8)
  - Dry mouth [Unknown]
  - Depressed level of consciousness [Unknown]
  - Suicidal ideation [Unknown]
  - Decreased appetite [Unknown]
  - Depression [Unknown]
  - Increased appetite [Unknown]
  - Disturbance in attention [Unknown]
  - Mood swings [Unknown]
